FAERS Safety Report 9154631 (Version 2)
Quarter: 2013Q1

REPORT INFORMATION
  Report Type: Spontaneous
  Country: US (occurrence: None)
  Receive Date: 20130201
  Receipt Date: 20130226
  Transmission Date: 20140127
  Serious: Yes (Other)
  Sender: FDA-Public Use
  Company Number: 20130026

PATIENT
  Age: 43 Year
  Sex: Female

DRUGS (7)
  1. VENOFER [Suspect]
     Dosage: UNK DOSE 5
  2. CITALOPRAM [Suspect]
     Indication: ANTIDEPRESSANT THERAPY
     Route: 042
     Dates: start: 20090909, end: 20090915
  3. DEXAMETHASONE SODIUM PHOSPHATE INJECTION, USP (4901-25) 4 MG/ML [Suspect]
     Indication: PREMEDICATION
     Dosage: 2 MG, IV PIGGYBACK IN 100CC NS INTRAVENOUS
     Route: 042
     Dates: start: 200908, end: 200908
  4. FERRLECIT [Suspect]
     Dosage: 125 MG/WK FOR 4 WEEKS, IV
     Route: 042
     Dates: start: 200905, end: 200906
  5. FERRLECIT [Suspect]
     Indication: IRON DEFICIENCY ANAEMIA
     Dosage: 250 MG OVER 2 HRS IN NS  INTRAVENOUS
     Route: 042
     Dates: start: 20090511, end: 20090511
  6. FERRLECIT [Suspect]
     Dosage: 250 MG OVER 2 HR IN 1 LITER NS INTRAVENOS
     Route: 042
     Dates: start: 20090706, end: 20090706
  7. SOLU-CORTEF [Suspect]
     Indication: PREMEDICATION
     Dosage: 100 MG IV PIGGYBACK INTRAVENOUS
     Route: 042
     Dates: start: 200905, end: 200907

REACTIONS (36)
  - Hypokalaemia [None]
  - Steroid withdrawal syndrome [None]
  - Dizziness [None]
  - Confusional state [None]
  - Disorientation [None]
  - Agitation [None]
  - Loss of consciousness [None]
  - Rectal haemorrhage [None]
  - Abdominal pain [None]
  - Anaemia [None]
  - Back pain [None]
  - Blood pressure decreased [None]
  - Blood pressure systolic decreased [None]
  - Decreased appetite [None]
  - Diarrhoea [None]
  - Dry mouth [None]
  - Dysgeusia [None]
  - Dyskinesia [None]
  - Dyspnoea [None]
  - Faecal incontinence [None]
  - Fatigue [None]
  - Feeling abnormal [None]
  - Hypoaesthesia [None]
  - Hypotension [None]
  - Hypotonia [None]
  - Injection site swelling [None]
  - Insomnia [None]
  - Logorrhoea [None]
  - Nausea [None]
  - Overdose [None]
  - Psychomotor hyperactivity [None]
  - Syncope [None]
  - Tremor [None]
  - Nervousness [None]
  - Vision blurred [None]
  - Vomiting [None]
